FAERS Safety Report 8661737 (Version 2)
Quarter: 2013Q1

REPORT INFORMATION
  Report Type: Spontaneous
  Country: JP (occurrence: JP)
  Receive Date: 20120712
  Receipt Date: 20130228
  Transmission Date: 20140127
  Serious: No
  Sender: FDA-Public Use
  Company Number: JP-ELI_LILLY_AND_COMPANY-JP201204001879

PATIENT
  Age: 76 Year
  Sex: Male

DRUGS (1)
  1. FORTEO [Suspect]
     Dosage: UNK, EACH MORNING
     Route: 058
     Dates: start: 201204

REACTIONS (2)
  - Injection site erythema [Unknown]
  - Blood uric acid increased [Unknown]
